FAERS Safety Report 5250764-2 (Version None)
Quarter: 2007Q1

REPORT INFORMATION
  Report Type: 
  Country: None (occurrence: None)
  Receive Date: 20070228
  Receipt Date: 20070215
  Transmission Date: 20070707
  Serious: Yes (Hospitalization)
  Sender: FDA-Public Use
  Company Number: BE-ELI_LILLY_AND_COMPANY-BE200701005810

PATIENT
  Age: 13 Year
  Sex: Male
  Weight: 33 kg

DRUGS (1)
  1. ATOMOXETINE HYDROCHLORIDE [Suspect]
     Indication: ATTENTION DEFICIT/HYPERACTIVITY DISORDER
     Dosage: 45 MG, UNK
     Route: 048
     Dates: start: 20040302, end: 20060920

REACTIONS (1)
  - LOSS OF CONSCIOUSNESS [None]
